FAERS Safety Report 16528621 (Version 4)
Quarter: 2019Q3

REPORT INFORMATION
  Report Type: Report from Study
  Country: US (occurrence: US)
  Receive Date: 20190703
  Receipt Date: 20190903
  Transmission Date: 20191004
  Serious: Yes (Hospitalization)
  Sender: FDA-Public Use
  Company Number: US-ACTELION-A-US2019-192475

PATIENT
  Age: 27 Year
  Sex: Female
  Weight: 78.01 kg

DRUGS (5)
  1. VELETRI [Suspect]
     Active Substance: EPOPROSTENOL
     Indication: PULMONARY ARTERIAL HYPERTENSION
     Dosage: 12.8 NG/KG, PER MIN
     Route: 042
  2. OPSUMIT [Suspect]
     Active Substance: MACITENTAN
     Indication: PULMONARY ARTERIAL HYPERTENSION
     Dosage: UNK
     Route: 048
     Dates: start: 20190525
  3. REVATIO [Concomitant]
     Active Substance: SILDENAFIL CITRATE
  4. ALDACTONE [Concomitant]
     Active Substance: SPIRONOLACTONE
  5. DIGOXIN. [Concomitant]
     Active Substance: DIGOXIN

REACTIONS (8)
  - Hypotension [Unknown]
  - Heart rate increased [Unknown]
  - Lung transplant [Unknown]
  - Respiratory failure [Recovered/Resolved]
  - Atrial fibrillation [Unknown]
  - Pulmonary arterial pressure increased [Unknown]
  - Pulmonary arterial hypertension [Unknown]
  - Hypoxia [Not Recovered/Not Resolved]

NARRATIVE: CASE EVENT DATE: 2019
